FAERS Safety Report 23835185 (Version 2)
Quarter: 2025Q1

REPORT INFORMATION
  Report Type: Spontaneous
  Country: GB (occurrence: GB)
  Receive Date: 20240509
  Receipt Date: 20250107
  Transmission Date: 20250409
  Serious: Yes (Other)
  Sender: AMGEN
  Company Number: GB-Vifor (International) Inc.-VIT-2024-03861

PATIENT
  Age: 60 Year
  Sex: Male
  Weight: 91.6 kg

DRUGS (9)
  1. TAVNEOS [Suspect]
     Active Substance: AVACOPAN
     Indication: Anti-neutrophil cytoplasmic antibody positive vasculitis
     Dosage: 60 MILLIGRAM, QD (30,MG,BID)
     Route: 048
     Dates: start: 20231012, end: 20240420
  2. TAVNEOS [Suspect]
     Active Substance: AVACOPAN
     Dosage: 60 MILLIGRAM, QD (30 MG, BID)
     Route: 048
     Dates: start: 20240426, end: 20241111
  3. TAVNEOS [Suspect]
     Active Substance: AVACOPAN
     Dosage: 60 MILLIGRAM, QD (30 MG, BID)
     Route: 048
     Dates: start: 20241118
  4. RITUXIMAB [Concomitant]
     Active Substance: RITUXIMAB
     Indication: Anti-neutrophil cytoplasmic antibody positive vasculitis
     Route: 040
     Dates: start: 20231013, end: 20231013
  5. RITUXIMAB [Concomitant]
     Active Substance: RITUXIMAB
     Route: 040
     Dates: start: 20231027, end: 20231027
  6. RITUXIMAB [Concomitant]
     Active Substance: RITUXIMAB
     Route: 040
     Dates: start: 20240426, end: 20240426
  7. RITUXIMAB [Concomitant]
     Active Substance: RITUXIMAB
     Route: 040
     Dates: start: 20241025, end: 20241025
  8. PREDNISOLONE [Concomitant]
     Active Substance: PREDNISOLONE
     Indication: Anti-neutrophil cytoplasmic antibody positive vasculitis
     Dosage: 30 MILLIGRAM, QD (COMPLETION OF PLANNED COURSE)
     Route: 048
     Dates: start: 20231012, end: 20231019
  9. PREDNISOLONE [Concomitant]
     Active Substance: PREDNISOLONE
     Dosage: 20 MILLIGRAM, QD (COMPLETION OF PLANNED COURSE)
     Route: 048
     Dates: start: 20231019, end: 20231026

REACTIONS (7)
  - Lower respiratory tract infection [Recovered/Resolved]
  - Cough [Recovered/Resolved]
  - Pain [Recovered/Resolved]
  - Nasopharyngitis [Recovered/Resolved]
  - Sinusitis [Recovered/Resolved]
  - Headache [Recovered/Resolved]
  - Hypertension [Recovering/Resolving]

NARRATIVE: CASE EVENT DATE: 20240102
